FAERS Safety Report 13238415 (Version 1)
Quarter: 2017Q1

REPORT INFORMATION
  Report Type: Spontaneous
  Country: US (occurrence: US)
  Receive Date: 20170215
  Receipt Date: 20170215
  Transmission Date: 20170428
  Serious: Yes (Disabling)
  Sender: FDA-Public Use
  Company Number: None

PATIENT
  Age: 4 Year
  Sex: Female
  Weight: 18.36 kg

DRUGS (2)
  1. MIRALAX [Suspect]
     Active Substance: POLYETHYLENE GLYCOL 3350
     Indication: CONSTIPATION
     Dosage: QUANTITY:527 POWDER;?
     Route: 048
  2. GARDEN OF LIFE RAW PREBIOTIC/PROBIOTIC [Concomitant]

REACTIONS (5)
  - Drug ineffective [None]
  - Anger [None]
  - Crying [None]
  - School refusal [None]
  - Anxiety [None]

NARRATIVE: CASE EVENT DATE: 20161201
